FAERS Safety Report 21779116 (Version 1)
Quarter: 2022Q4

REPORT INFORMATION
  Report Type: Report from Study
  Country: US (occurrence: US)
  Receive Date: 20221226
  Receipt Date: 20221226
  Transmission Date: 20230112
  Serious: No
  Sender: FDA-Public Use
  Company Number: US-ABBVIE-4202944

PATIENT
  Sex: Female

DRUGS (2)
  1. SKYRIZI [Suspect]
     Active Substance: RISANKIZUMAB-RZAA
     Indication: Psoriasis
     Dosage: WEEK 0. FORM STRENGTH: 150 MG
     Route: 058
     Dates: start: 20221006, end: 20221006
  2. SKYRIZI [Suspect]
     Active Substance: RISANKIZUMAB-RZAA
     Dosage: WEEK 4  ?ONSET DATE FOR ADVERSE EVENTS GASTROINTESTINAL UPSET AND DID NOT HELP SKYRIZI HELPING BE...
     Route: 058
     Dates: start: 202211

REACTIONS (2)
  - Abdominal discomfort [Unknown]
  - Drug ineffective [Unknown]
